FAERS Safety Report 25543968 (Version 5)
Quarter: 2025Q3

REPORT INFORMATION
  Report Type: Spontaneous
  Country: EU (occurrence: EU)
  Receive Date: 20250711
  Receipt Date: 20250915
  Transmission Date: 20251020
  Serious: Yes (Hospitalization, Other)
  Sender: IPSEN BIOPHARMACEUTICALS, INC.
  Company Number: EU-IPSEN Group, Research and Development-2025-16612

PATIENT
  Age: 35 Year
  Sex: Female
  Weight: 50 kg

DRUGS (4)
  1. DYSPORT [Suspect]
     Active Substance: ABOBOTULINUMTOXINA
     Indication: Multiple sclerosis
     Route: 030
     Dates: start: 20250509, end: 20250509
  2. DYSPORT [Suspect]
     Active Substance: ABOBOTULINUMTOXINA
     Indication: Muscle spasticity
     Route: 030
  3. PAROXETINE [Concomitant]
     Active Substance: PAROXETINE
     Indication: Depressed mood
  4. MELATONIN [Concomitant]
     Active Substance: MELATONIN
     Indication: Sleep disorder

REACTIONS (5)
  - Neuromuscular toxicity [Recovering/Resolving]
  - Lung disorder [Recovering/Resolving]
  - Multiple sclerosis relapse [Recovering/Resolving]
  - Dyspnoea [Unknown]
  - Diplopia [Unknown]

NARRATIVE: CASE EVENT DATE: 20250512
